FAERS Safety Report 4868129-1 (Version None)
Quarter: 2005Q4

REPORT INFORMATION
  Report Type: 
  Country: None (occurrence: None)
  Receive Date: 20051229
  Receipt Date: 20051220
  Transmission Date: 20060501
  Serious: Yes (Hospitalization)
  Sender: FDA-Public Use
  Company Number: PHRM2005FR03345

PATIENT
  Age: 48 Year
  Sex: Female

DRUGS (2)
  1. CYCLO 3 [Concomitant]
  2. TEGRETOL [Suspect]
     Indication: EPILEPSY
     Dosage: 200 MG, BID
     Route: 048
     Dates: start: 20000101

REACTIONS (2)
  - FOCAL NODULAR HYPERPLASIA [None]
  - RENAL COLIC [None]
